FAERS Safety Report 6238190-0 (Version None)
Quarter: 2009Q2

REPORT INFORMATION
  Report Type: 
  Country: None (occurrence: None)
  Receive Date: 20090618
  Receipt Date: 20090608
  Transmission Date: 20091009
  Serious: Yes (Other)
  Sender: FDA-Public Use
  Company Number: CHPA2009US13345

PATIENT
  Age: 83 Year
  Sex: Male
  Weight: 65.3 kg

DRUGS (2)
  1. GAS-X EXTSTR CHEWABLE TABS CHERRY CREME (NCH) (SIMETHICONE) CHEWABLE T [Suspect]
     Indication: FLATULENCE
     Dosage: ORAL
     Route: 048
     Dates: start: 20090606, end: 20090606
  2. BENEFIBER WHEAT DEXTRIN (WHEAT DEXTRIN) [Concomitant]

REACTIONS (3)
  - MICTURITION DISORDER [None]
  - PROSTATOMEGALY [None]
  - THERAPEUTIC RESPONSE DECREASED [None]
